FAERS Safety Report 13079651 (Version 1)
Quarter: 2017Q1

REPORT INFORMATION
  Report Type: Spontaneous
  Country: US (occurrence: US)
  Receive Date: 20170103
  Receipt Date: 20170103
  Transmission Date: 20170428
  Serious: Yes (Other)
  Sender: FDA-Public Use
  Company Number: US-PROCTER_AND_GAMBLE-GS16154526

PATIENT
  Sex: Male

DRUGS (1)
  1. BABYRUB (EUCALYPTUS OIL) [Suspect]
     Active Substance: EUCALYPTUS OIL
     Route: 061

REACTIONS (2)
  - Eye swelling [Unknown]
  - Dyspnoea [Unknown]
